FAERS Safety Report 8087102-6 (Version None)
Quarter: 2012Q1

REPORT INFORMATION
  Report Type: 
  Country: None (occurrence: None)
  Receive Date: 20120128
  Receipt Date: 20110524
  Transmission Date: 20120608
  Serious: No
  Sender: FDA-Public Use
  Company Number: US-ABBOTT-11P-163-0727792-00

PATIENT
  Sex: Female

DRUGS (7)
  1. HUMIRA [Suspect]
     Route: 058
     Dates: start: 20100501, end: 20110407
  2. IBUPROFEN [Concomitant]
     Indication: PAIN
  3. HUMIRA [Suspect]
     Indication: PSORIATIC ARTHROPATHY
     Route: 058
     Dates: start: 20090101, end: 20100501
  4. ZETIA [Concomitant]
     Indication: BLOOD CHOLESTEROL INCREASED
  5. ULTRAM [Concomitant]
     Indication: PAIN
  6. METHOTREXATE [Concomitant]
     Indication: PSORIATIC ARTHROPATHY
  7. GABAPENTIN [Concomitant]
     Indication: PAIN IN EXTREMITY

REACTIONS (2)
  - MULTIPLE SCLEROSIS [None]
  - MUSCLE TWITCHING [None]
